FAERS Safety Report 25324849 (Version 1)
Quarter: 2025Q2

REPORT INFORMATION
  Report Type: Spontaneous
  Country: JP (occurrence: JP)
  Receive Date: 20250516
  Receipt Date: 20250516
  Transmission Date: 20250717
  Serious: Yes (Other)
  Sender: JOHNSON AND JOHNSON
  Company Number: JP-JNJFOC-20250510243

PATIENT

DRUGS (1)
  1. TRACLEER [Suspect]
     Active Substance: BOSENTAN
     Indication: Scleroderma
     Dosage: DOSE UNKNOWN
     Route: 048
     Dates: start: 20250411

REACTIONS (2)
  - Dementia [Unknown]
  - Illness [Unknown]
